FAERS Safety Report 9638291 (Version 2)
Quarter: 2013Q4

REPORT INFORMATION
  Report Type: Spontaneous
  Country: IT (occurrence: IT)
  Receive Date: 20131022
  Receipt Date: 20131216
  Transmission Date: 20140711
  Serious: Yes (Hospitalization)
  Sender: FDA-Public Use
  Company Number: IT-PFIZER INC-2013298532

PATIENT
  Age: 81 Year
  Sex: Female

DRUGS (2)
  1. ZITROMAX [Suspect]
     Indication: TOOTH ABSCESS
     Dosage: 1 DF, 1X/DAY
     Route: 048
     Dates: start: 20131009, end: 20131011
  2. ZITROMAX [Suspect]
     Indication: PYREXIA

REACTIONS (3)
  - Epilepsy [Not Recovered/Not Resolved]
  - Sopor [Not Recovered/Not Resolved]
  - Altered state of consciousness [Not Recovered/Not Resolved]
